FAERS Safety Report 13973962 (Version 1)
Quarter: 2017Q3

REPORT INFORMATION
  Report Type: Spontaneous
  Country: FR (occurrence: FR)
  Receive Date: 20170915
  Receipt Date: 20170915
  Transmission Date: 20171128
  Serious: Yes (Hospitalization, Other)
  Sender: FDA-Public Use
  Company Number: FR-PFIZER INC-2017391676

PATIENT
  Age: 75 Year
  Sex: Male

DRUGS (14)
  1. PANTOPRAZOLE [Concomitant]
     Active Substance: PANTOPRAZOLE
  2. SOLU-MEDROL [Suspect]
     Active Substance: METHYLPREDNISOLONE SODIUM SUCCINATE
     Indication: PREMEDICATION
     Dosage: UNK, CYCLIC
     Route: 042
  3. OXALIPLATINE [Suspect]
     Active Substance: OXALIPLATIN
     Indication: NEOPLASM MALIGNANT
     Dosage: 127.5 MG, CYCLIC
     Dates: start: 2016, end: 201702
  4. PARACETAMOL [Concomitant]
     Active Substance: ACETAMINOPHEN
     Dosage: UNK
  5. FLUOROURACIL. [Suspect]
     Active Substance: FLUOROURACIL
     Indication: NEOPLASM MALIGNANT
     Dosage: 3575 MG, CYCLIC
     Dates: start: 2016, end: 201702
  6. IRINOTECAN HCL [Suspect]
     Active Substance: IRINOTECAN HYDROCHLORIDE
     Indication: NEOPLASM MALIGNANT
     Dosage: 230 MG, CYCLIC
     Route: 042
     Dates: start: 2016, end: 201702
  7. EUROBIOL /00014701/ [Concomitant]
     Dosage: UNK
  8. IRINOTECAN HCL [Suspect]
     Active Substance: IRINOTECAN HYDROCHLORIDE
     Dosage: 230 MG, CYCLIC
     Route: 042
     Dates: start: 201706
  9. CODEINE [Concomitant]
     Active Substance: CODEINE
     Dosage: UNK
  10. FLUOROURACIL. [Suspect]
     Active Substance: FLUOROURACIL
     Dosage: 3575 MG, CYCLIC
     Dates: start: 201706
  11. OXALIPLATINE [Suspect]
     Active Substance: OXALIPLATIN
     Dosage: 127.5 MG, CYCLIC
     Dates: start: 201706
  12. ZOPHREN /00955301/ [Suspect]
     Active Substance: ONDANSETRON
     Indication: PREMEDICATION
     Dosage: UNK, CYCLIC
     Route: 042
  13. FLUINDIONE [Concomitant]
     Active Substance: FLUINDIONE
     Dosage: UNK
  14. HYDROXYZINE [Concomitant]
     Active Substance: HYDROXYZINE HYDROCHLORIDE
     Dosage: UNK

REACTIONS (3)
  - Chills [Recovered/Resolved]
  - Hypotension [Recovered/Resolved]
  - Hypothermia [Recovered/Resolved]

NARRATIVE: CASE EVENT DATE: 20170613
